FAERS Safety Report 9304042 (Version 1)
Quarter: 2013Q2

REPORT INFORMATION
  Report Type: Spontaneous
  Country: CM (occurrence: CM)
  Receive Date: 20130522
  Receipt Date: 20130522
  Transmission Date: 20140414
  Serious: Yes (Other)
  Sender: FDA-Public Use
  Company Number: CM-ROXANE LABORATORIES, INC.-2013-RO-00811RO

PATIENT
  Age: 30 Year
  Sex: Male

DRUGS (3)
  1. ZIDOVUDINE [Suspect]
     Indication: HIV INFECTION WHO CLINICAL STAGE I
     Dates: start: 201103
  2. LAMIVUDINE [Suspect]
     Indication: HIV INFECTION WHO CLINICAL STAGE I
     Dates: start: 201103
  3. EFAVIRENZ [Suspect]
     Indication: HIV INFECTION WHO CLINICAL STAGE I
     Dates: start: 201103

REACTIONS (2)
  - Vitiligo [Recovered/Resolved]
  - Immune reconstitution inflammatory syndrome [Unknown]
